FAERS Safety Report 7133576-4 (Version None)
Quarter: 2010Q4

REPORT INFORMATION
  Report Type: 
  Country: None (occurrence: None)
  Receive Date: 20101202
  Receipt Date: 20101125
  Transmission Date: 20110411
  Serious: Yes (Hospitalization)
  Sender: FDA-Public Use
  Company Number: GB-ABBOTT-10P-167-0679292-00

PATIENT
  Age: 66 Year
  Sex: Male

DRUGS (2)
  1. PROSTAP 3 [Suspect]
     Indication: PROSTATE CANCER
     Dates: start: 20101015
  2. INSULIN [Concomitant]
     Indication: TYPE 2 DIABETES MELLITUS

REACTIONS (1)
  - HYPERSENSITIVITY [None]
